FAERS Safety Report 4358082-1 (Version None)
Quarter: 2004Q2

REPORT INFORMATION
  Report Type: 
  Country: None (occurrence: None)
  Receive Date: 20040514
  Receipt Date: 20040325
  Transmission Date: 20050107
  Serious: Yes (Hospitalization)
  Sender: FDA-Public Use
  Company Number: US-BRISTOL-MYERS SQUIBB COMPANY-12547170

PATIENT
  Age: 74 Year
  Sex: Male
  Weight: 101 kg

DRUGS (3)
  1. AVAPRO [Suspect]
     Indication: HYPERTENSION
     Route: 048
     Dates: start: 20040227, end: 20040228
  2. VANCOMYCIN [Suspect]
     Route: 042
     Dates: start: 20040301
  3. DIPHENOXYLATE HCL + ATROPINE SULFATE [Concomitant]
     Dosage: GENERIC LOMOTIL ^27-FEB-2004^

REACTIONS (3)
  - BLOOD GLUCOSE INCREASED [None]
  - HYPERSENSITIVITY [None]
  - HYPERTENSION [None]
